FAERS Safety Report 5165611-7 (Version None)
Quarter: 2006Q4

REPORT INFORMATION
  Report Type: 
  Country: None (occurrence: None)
  Receive Date: 20061206
  Receipt Date: 20061130
  Transmission Date: 20070319
  Serious: Yes (Death)
  Sender: FDA-Public Use
  Company Number: US-BRISTOL-MYERS SQUIBB COMPANY-13596374

PATIENT
  Age: 60 Year
  Sex: Female

DRUGS (3)
  1. TAXOL [Suspect]
     Indication: METASTATIC NEOPLASM
     Dates: start: 20060501, end: 20060501
  2. RADIATION THERAPY [Concomitant]
  3. CARBOPLATIN [Concomitant]
     Indication: CHEMOTHERAPY

REACTIONS (1)
  - DEATH [None]
